FAERS Safety Report 5730669-0 (Version None)
Quarter: 2008Q2

REPORT INFORMATION
  Report Type: 
  Country: None (occurrence: None)
  Receive Date: 20080507
  Receipt Date: 20080506
  Transmission Date: 20081010
  Serious: Yes (Other)
  Sender: FDA-Public Use
  Company Number: CZ-BRISTOL-MYERS SQUIBB COMPANY-14176713

PATIENT
  Sex: Female

DRUGS (3)
  1. TAXOL [Suspect]
     Dates: start: 20031023, end: 20040201
  2. CARBOPLATIN [Suspect]
     Dosage: 6 SERIES OF CHEMOTHERAPY WERE APPLIED.
     Dates: end: 20040201
  3. PLATIDIAM [Suspect]
     Dates: start: 20031023, end: 20040201

REACTIONS (2)
  - ARTHRALGIA [None]
  - CREATININE RENAL CLEARANCE DECREASED [None]
